FAERS Safety Report 7412316-5 (Version None)
Quarter: 2011Q2

REPORT INFORMATION
  Report Type: 
  Country: None (occurrence: None)
  Receive Date: 20110408
  Receipt Date: 20110408
  Transmission Date: 20111010
  Serious: Yes (Other)
  Sender: FDA-Public Use
  Company Number: None

PATIENT
  Sex: Male
  Weight: 126.5536 kg

DRUGS (1)
  1. GREENSTONE ; GABAPENTIN 400 MG [Suspect]
     Indication: PAIN
     Dosage: 400 MG  QID ORAL
     Route: 048
     Dates: start: 20091102

REACTIONS (4)
  - NAUSEA [None]
  - PRODUCT SUBSTITUTION ISSUE [None]
  - HEADACHE [None]
  - DRUG EFFECT DECREASED [None]
